FAERS Safety Report 26040637 (Version 1)
Quarter: 2025Q4

REPORT INFORMATION
  Report Type: Spontaneous
  Country: EU (occurrence: EU)
  Receive Date: 20251113
  Receipt Date: 20251113
  Transmission Date: 20260118
  Serious: Yes (Other)
  Sender: TEVA
  Company Number: None

PATIENT
  Age: 75 Year
  Sex: Female
  Weight: 55 kg

DRUGS (18)
  1. EPIRUBICIN [Suspect]
     Active Substance: EPIRUBICIN
     Indication: Breast cancer female
     Dosage: TIME INTERVAL: TOTAL: 3 EC100 C1: EPIRUBICIN HYDROCHLORIDE
     Route: 042
     Dates: start: 20211022, end: 20211022
  2. EPIRUBICIN [Suspect]
     Active Substance: EPIRUBICIN
     Indication: Breast cancer female
     Dosage: TIME INTERVAL: TOTAL: 3 EC100 C2
     Route: 042
     Dates: start: 20211112, end: 20211112
  3. EPIRUBICIN [Suspect]
     Active Substance: EPIRUBICIN
     Indication: Breast cancer female
     Dosage: TIME INTERVAL: TOTAL: 3 EC100 C3
     Route: 042
     Dates: start: 20211203, end: 20211203
  4. PACLITAXEL [Concomitant]
     Active Substance: PACLITAXEL
     Indication: Breast cancer female
     Dosage: TIME INTERVAL: TOTAL: C1?12 WEEKLY INFUSIONS
     Route: 042
     Dates: start: 20211224, end: 20211224
  5. PACLITAXEL [Concomitant]
     Active Substance: PACLITAXEL
     Indication: Breast cancer female
     Dosage: TIME INTERVAL: TOTAL: C4?12 WEEKLY INFUSIONS
     Route: 042
     Dates: start: 20220114, end: 20220114
  6. PACLITAXEL [Concomitant]
     Active Substance: PACLITAXEL
     Indication: Breast cancer female
     Dosage: TIME INTERVAL: TOTAL: C6?12 WEEKLY INFUSIONS
     Route: 042
     Dates: start: 20220128, end: 20220128
  7. PACLITAXEL [Concomitant]
     Active Substance: PACLITAXEL
     Indication: Breast cancer female
     Dosage: TIME INTERVAL: TOTAL: C9?12 WEEKLY INFUSIONS
     Route: 042
     Dates: start: 20220218, end: 20220218
  8. PACLITAXEL [Concomitant]
     Active Substance: PACLITAXEL
     Indication: Breast cancer female
     Dosage: TIME INTERVAL: TOTAL: C8?12 WEEKLY INFUSIONS
     Route: 042
     Dates: start: 20220211, end: 20220211
  9. PACLITAXEL [Concomitant]
     Active Substance: PACLITAXEL
     Indication: Breast cancer female
     Dosage: TIME INTERVAL: 1 TOTAL: C11?12 PERFUSIONS HEBDOMADAIRES
     Route: 042
     Dates: start: 20220304, end: 20220304
  10. PACLITAXEL [Concomitant]
     Active Substance: PACLITAXEL
     Indication: Breast cancer female
     Dosage: TIME INTERVAL: TOTAL: C5?12 WEEKLY INFUSIONS
     Route: 042
     Dates: start: 20220121, end: 20220121
  11. PACLITAXEL [Concomitant]
     Active Substance: PACLITAXEL
     Indication: Breast cancer female
     Dosage: TIME INTERVAL: TOTAL: C2?12 WEEKLY INFUSIONS
     Route: 042
     Dates: start: 20211231, end: 20211231
  12. PACLITAXEL [Concomitant]
     Active Substance: PACLITAXEL
     Indication: Breast cancer female
     Dosage: TIME INTERVAL: TOTAL: C7?12 WEEKLY INFUSIONS
     Route: 042
     Dates: start: 20220204, end: 20220204
  13. PACLITAXEL [Concomitant]
     Active Substance: PACLITAXEL
     Indication: Breast cancer female
     Dosage: TIME INTERVAL: TOTAL: C10?12 WEEKLY INFUSIONS
     Route: 042
     Dates: start: 20220225, end: 20220225
  14. PACLITAXEL [Concomitant]
     Active Substance: PACLITAXEL
     Indication: Breast cancer female
     Dosage: TIME INTERVAL: 1 TOTAL: C12?12 PERFUSIONS HEBDOMADAIRES
     Route: 042
     Dates: start: 20220311, end: 20220311
  15. PACLITAXEL [Concomitant]
     Active Substance: PACLITAXEL
     Indication: Breast cancer female
     Dosage: TIME INTERVAL: TOTAL: C3?12 WEEKLY INFUSIONS
     Route: 042
     Dates: start: 20220107, end: 20220107
  16. CYCLOPHOSPHAMIDE [Concomitant]
     Active Substance: CYCLOPHOSPHAMIDE
     Indication: Breast cancer female
     Dosage: TIME INTERVAL: TOTAL: 3 EC100 C1
     Route: 042
     Dates: start: 20211022, end: 20211022
  17. CYCLOPHOSPHAMIDE [Concomitant]
     Active Substance: CYCLOPHOSPHAMIDE
     Indication: Breast cancer female
     Dosage: TIME INTERVAL: TOTAL: 3 EC100 C2
     Route: 042
     Dates: start: 20211112, end: 20211112
  18. CYCLOPHOSPHAMIDE [Concomitant]
     Active Substance: CYCLOPHOSPHAMIDE
     Indication: Breast cancer female
     Dosage: TIME INTERVAL: TOTAL: 3 EC100 C3
     Route: 042
     Dates: start: 20211203, end: 20211203

REACTIONS (1)
  - Dilated cardiomyopathy [Not Recovered/Not Resolved]

NARRATIVE: CASE EVENT DATE: 20231110
